FAERS Safety Report 11376835 (Version 1)
Quarter: 2015Q3

REPORT INFORMATION
  Report Type: Spontaneous
  Country: US (occurrence: US)
  Receive Date: 20150813
  Receipt Date: 20150813
  Transmission Date: 20151125
  Serious: No
  Sender: FDA-Public Use
  Company Number: US-FRESENIUS KABI-FK201500776

PATIENT
  Sex: Female

DRUGS (1)
  1. OXYTOCIN INJECTION, USP [Suspect]
     Active Substance: OXYTOCIN
     Indication: UTERINE CONTRACTIONS DURING PREGNANCY
     Route: 065

REACTIONS (2)
  - Drug ineffective [Unknown]
  - Exposure during pregnancy [Unknown]
